FAERS Safety Report 18458153 (Version 4)
Quarter: 2021Q2

REPORT INFORMATION
  Report Type: Report from Study
  Country: US (occurrence: US)
  Receive Date: 20201103
  Receipt Date: 20210412
  Transmission Date: 20210717
  Serious: No
  Sender: FDA-Public Use
  Company Number: NVSC2020US288767

PATIENT
  Age: 42 Year
  Sex: Female

DRUGS (1)
  1. ERYTHROMYCIN. [Suspect]
     Active Substance: ERYTHROMYCIN
     Indication: PRODUCT USED FOR UNKNOWN INDICATION
     Dosage: UNK
     Route: 065

REACTIONS (8)
  - Pyrexia [Unknown]
  - Drug hypersensitivity [Unknown]
  - Depressed mood [Unknown]
  - Influenza [Unknown]
  - Rhinorrhoea [Unknown]
  - Flushing [Unknown]
  - Malaise [Unknown]
  - Pruritus [Unknown]

NARRATIVE: CASE EVENT DATE: 20201023
